FAERS Safety Report 10088155 (Version 3)
Quarter: 2014Q3

REPORT INFORMATION
  Report Type: Spontaneous
  Country: DE (occurrence: DE)
  Receive Date: 20140421
  Receipt Date: 20140704
  Transmission Date: 20150326
  Serious: Yes (Hospitalization)
  Sender: FDA-Public Use
  Company Number: DE-BIOGENIDEC-2014BI036014

PATIENT
  Age: 57 Year
  Sex: Female

DRUGS (5)
  1. PK MERZ [Concomitant]
     Active Substance: AMANTADINE SULFATE
     Indication: MULTIPLE SCLEROSIS
     Dates: start: 200504
  2. AVONEX [Suspect]
     Active Substance: INTERFERON BETA-1A
     Indication: PRIMARY PROGRESSIVE MULTIPLE SCLEROSIS
     Route: 030
     Dates: start: 20050501, end: 20140531
  3. NAFTILONG [Concomitant]
     Indication: PERIPHERAL ARTERIAL OCCLUSIVE DISEASE
  4. AVONEX [Suspect]
     Active Substance: INTERFERON BETA-1A
     Indication: PRIMARY PROGRESSIVE MULTIPLE SCLEROSIS
     Route: 030
     Dates: start: 2003
  5. ASPIRIN. [Concomitant]
     Active Substance: ASPIRIN
     Indication: PERIPHERAL ARTERIAL OCCLUSIVE DISEASE
     Dates: start: 201301

REACTIONS (5)
  - Off label use [Recovered/Resolved]
  - Small cell lung cancer [Not Recovered/Not Resolved]
  - Drug intolerance [Unknown]
  - Chronic obstructive pulmonary disease [Not Recovered/Not Resolved]
  - Lung adenocarcinoma [Not Recovered/Not Resolved]

NARRATIVE: CASE EVENT DATE: 2003
